FAERS Safety Report 16091729 (Version 1)
Quarter: 2019Q1

REPORT INFORMATION
  Report Type: Spontaneous
  Country: FR (occurrence: FR)
  Receive Date: 20190319
  Receipt Date: 20190319
  Transmission Date: 20190418
  Serious: Yes (Death)
  Sender: FDA-Public Use
  Company Number: FR-PROVELL PHARMACEUTICALS-2064276

PATIENT
  Age: 51 Year
  Sex: Male

DRUGS (3)
  1. SERESTA [Concomitant]
     Active Substance: OXAZEPAM
  2. EUTHYROX [Suspect]
     Active Substance: LEVOTHYROXINE SODIUM
     Indication: PRODUCT USED FOR UNKNOWN INDICATION
  3. KARDEGIC [Concomitant]
     Active Substance: ASPIRIN DL-LYSINE

REACTIONS (9)
  - Ill-defined disorder [None]
  - Pain in extremity [None]
  - Depression [None]
  - Decreased appetite [None]
  - Completed suicide [Fatal]
  - Disorientation [None]
  - Fatigue [None]
  - Thyroid function test abnormal [None]
  - Fall [None]

NARRATIVE: CASE EVENT DATE: 2014
